FAERS Safety Report 8065591-0 (Version None)
Quarter: 2012Q1

REPORT INFORMATION
  Report Type: 
  Country: None (occurrence: None)
  Receive Date: 20120124
  Receipt Date: 20120110
  Transmission Date: 20120608
  Serious: Yes (Other)
  Sender: FDA-Public Use
  Company Number: US-MYLANLABS-2012S1000851

PATIENT
  Age: 69 Year
  Sex: Female

DRUGS (15)
  1. NIACIN [Interacting]
     Dosage: 1000MG DAILY
     Route: 065
     Dates: start: 20090701
  2. ASPIRIN [Concomitant]
     Dosage: 81 MG DAILY
     Route: 065
  3. FENOFIBRATE [Concomitant]
     Dosage: 145MG DAILY
     Route: 065
  4. POTASSIUM CHLORIDE [Concomitant]
     Dosage: 20MEQ DAILY
     Route: 065
  5. ATORVASTATIN [Concomitant]
     Dosage: 10MG DAILY
     Route: 065
  6. FUROSEMIDE [Concomitant]
     Dosage: 20MG DAILY
     Route: 065
  7. BENAZEPRIL HYDROCHLORIDE [Concomitant]
     Dosage: 20MG DAILY
     Route: 065
  8. FOLIC ACID [Concomitant]
     Dosage: 400 MICROG DAILY
     Route: 065
  9. ATENOLOL [Concomitant]
     Dosage: 50MG DAILY
     Route: 065
  10. LEVOTHYROXINE SODIUM [Concomitant]
     Dosage: 150 MICROG DAILY
     Route: 065
  11. INSULIN GLARGINE [Concomitant]
     Dosage: 60 UNITS DAILY
     Route: 065
  12. INSULIN ASPART [Concomitant]
     Dosage: SLIDING SCALE (DAILY)
     Route: 065
  13. GLIPIZIDE [Concomitant]
     Route: 065
  14. WARFARIN SODIUM [Suspect]
     Indication: ANTICOAGULANT THERAPY
     Dosage: 2.5MG DAILY (17.5 MG/WEEK)
     Route: 065
  15. NIACIN [Interacting]
     Dosage: 500MG DAILY
     Route: 065
     Dates: start: 20090701

REACTIONS (2)
  - DRUG INTERACTION [None]
  - INTERNATIONAL NORMALISED RATIO INCREASED [None]
